FAERS Safety Report 13482295 (Version 1)
Quarter: 2017Q2

REPORT INFORMATION
  Report Type: Spontaneous
  Country: US (occurrence: US)
  Receive Date: 20170424
  Receipt Date: 20170424
  Transmission Date: 20170830
  Serious: No
  Sender: FDA-Public Use
  Company Number: GXBR2017US000985

PATIENT
  Age: 60 Year
  Sex: Male

DRUGS (1)
  1. LORAZEPAM ACTAVIS 0.5MG [Suspect]
     Active Substance: LORAZEPAM
     Indication: ANXIETY
     Dosage: 1MG (0.5MG X2) IN MORNING AND THEN 0.5MG IN THE AFTERNOON AND THEN 1MG (0.5MG X2) IN THE EVENING
     Route: 048
     Dates: start: 20170221

REACTIONS (3)
  - Headache [Recovered/Resolved]
  - Anxiety [Recovered/Resolved]
  - Insomnia [Recovered/Resolved]

NARRATIVE: CASE EVENT DATE: 20170221
